FAERS Safety Report 9826423 (Version 1)
Quarter: 2013Q4

REPORT INFORMATION
  Report Type: Spontaneous
  Country: US (occurrence: None)
  Receive Date: 20131112
  Receipt Date: 20131112
  Transmission Date: 20140711
  Serious: Yes (Other)
  Sender: FDA-Public Use
  Company Number: US-012388

PATIENT
  Sex: Female

DRUGS (1)
  1. PICO-SALAX [Suspect]
     Indication: PRODUCT USED FOR UNKNOWN INDICATION
     Dosage: (FIRST PACKET)
     Dates: start: 20130721

REACTIONS (2)
  - Treatment noncompliance [None]
  - No adverse event [None]
